FAERS Safety Report 7771277-X (Version None)
Quarter: 2011Q3

REPORT INFORMATION
  Report Type: 
  Country: None (occurrence: None)
  Receive Date: 20110922
  Receipt Date: 20110914
  Transmission Date: 20111222
  Serious: Yes (Other)
  Sender: FDA-Public Use
  Company Number: CN-PFIZER INC-2010128298

PATIENT
  Age: 31 Year
  Sex: Female
  Weight: 53 kg

DRUGS (8)
  1. FUROSEMIDE [Concomitant]
     Indication: PULMONARY ARTERIAL HYPERTENSION
     Dosage: 20 MG, ALTERNATE DAY
     Route: 048
     Dates: start: 20091203
  2. SITAXENTAN [Suspect]
     Indication: PULMONARY ARTERIAL HYPERTENSION
     Dosage: UNK
     Route: 048
     Dates: start: 20100617, end: 20101102
  3. DIGOXIN [Concomitant]
     Indication: PULMONARY ARTERIAL HYPERTENSION
     Dosage: 0.125 MG, 1X/DAY
     Route: 048
     Dates: start: 20091203
  4. POTASSIUM CHLORIDE [Concomitant]
     Indication: PULMONARY ARTERIAL HYPERTENSION
     Dosage: 1 G, 3X/DAY
     Route: 048
     Dates: start: 20091203
  5. SILDENAFIL CITRATE [Suspect]
     Indication: PULMONARY ARTERIAL HYPERTENSION
     Dosage: 20 MG, 3X/DAY
     Route: 048
     Dates: start: 20100617, end: 20101102
  6. ROSUVASTATIN [Concomitant]
     Indication: PULMONARY ARTERIAL HYPERTENSION
     Dosage: 10 MG, 1X/DAY
     Route: 048
     Dates: start: 20091203
  7. OXYGEN [Concomitant]
     Indication: PULMONARY ARTERIAL HYPERTENSION
     Dosage: 2 L/MIN, 6 HOURS/DAY
     Route: 055
     Dates: start: 20091203
  8. TORASEMIDE [Concomitant]
     Indication: PULMONARY ARTERIAL HYPERTENSION
     Dosage: 5 MG, ALTERNATE DAY
     Route: 048
     Dates: start: 20091203

REACTIONS (4)
  - HEPATIC FUNCTION ABNORMAL [None]
  - BLOOD BILIRUBIN INCREASED [None]
  - ASPARTATE AMINOTRANSFERASE INCREASED [None]
  - ALANINE AMINOTRANSFERASE INCREASED [None]
